FAERS Safety Report 7702498-X (Version None)
Quarter: 2011Q3

REPORT INFORMATION
  Report Type: 
  Country: None (occurrence: None)
  Receive Date: 20110823
  Receipt Date: 20110815
  Transmission Date: 20111222
  Serious: Yes (Hospitalization)
  Sender: FDA-Public Use
  Company Number: IE-BIOGENIDEC-2011BI031101

PATIENT
  Age: 55 Year
  Sex: Female
  Weight: 63 kg

DRUGS (3)
  1. AVONEX [Suspect]
     Indication: MULTIPLE SCLEROSIS
     Route: 030
     Dates: start: 20020520, end: 20110101
  2. AVONEX [Suspect]
     Route: 030
     Dates: start: 20110101
  3. CARDICOL [Concomitant]

REACTIONS (2)
  - CEREBRAL HAEMORRHAGE [None]
  - SYNCOPE [None]
